FAERS Safety Report 12288998 (Version 1)
Quarter: 2016Q2

REPORT INFORMATION
  Report Type: Spontaneous
  Country: FR (occurrence: FR)
  Receive Date: 20160421
  Receipt Date: 20160421
  Transmission Date: 20160815
  Serious: Yes (Hospitalization, Disabling)
  Sender: FDA-Public Use
  Company Number: FR-ASTRAZENECA-2016SE40574

PATIENT
  Age: 838 Month
  Sex: Male

DRUGS (1)
  1. CRESTOR [Suspect]
     Active Substance: ROSUVASTATIN CALCIUM
     Indication: TYPE IIA HYPERLIPIDAEMIA
     Route: 048
     Dates: start: 2011, end: 20160229

REACTIONS (3)
  - Amnesia [Unknown]
  - Myelitis transverse [Not Recovered/Not Resolved]
  - Sleep disorder [Unknown]

NARRATIVE: CASE EVENT DATE: 20160229
